FAERS Safety Report 4991542-9 (Version None)
Quarter: 2006Q2

REPORT INFORMATION
  Report Type: 
  Country: None (occurrence: None)
  Receive Date: 20060502
  Receipt Date: 20060419
  Transmission Date: 20061013
  Serious: Yes (Other)
  Sender: FDA-Public Use
  Company Number: 2006-BP-04430RO

PATIENT
  Age: 37 Year
  Sex: Male

DRUGS (17)
  1. PREDNISONE TAB [Suspect]
     Indication: PROPHYLAXIS AGAINST TRANSPLANT REJECTION
     Dosage: 5 MG
     Dates: start: 20021202
  2. BMS224818 (BELATACEPT) [Suspect]
     Indication: PROPHYLAXIS AGAINST TRANSPLANT REJECTION
     Dosage: 10 MG/KG, IV
     Route: 042
     Dates: start: 20021015, end: 20021112
  3. CELLCEPT [Suspect]
     Indication: PROPHYLAXIS AGAINST TRANSPLANT REJECTION
     Dosage: 1500 MG SEE TEXT
     Dates: start: 20021016, end: 20031101
  4. STIMULECT (BASILIXIMAB) [Suspect]
     Indication: PROPHYLAXIS AGAINST TRANSPLANT REJECTION
     Dates: start: 20021015, end: 20021019
  5. PROGRAF [Suspect]
     Indication: PROPHYLAXIS AGAINST TRANSPLANT REJECTION
     Dates: start: 20021202
  6. OKT3 (MUROMONAB) (MUROMONAB-CD3) [Suspect]
     Indication: PROPHYLAXIS AGAINST TRANSPLANT REJECTION
     Dosage: 5 MG
     Dates: start: 20021115, end: 20021124
  7. LASIX [Concomitant]
  8. DAPSONE [Concomitant]
  9. SYNTHROID [Concomitant]
  10. ALLOPURINOL [Concomitant]
  11. PROTONIX [Concomitant]
  12. VASOTEC [Concomitant]
  13. FOLIC ACID [Concomitant]
  14. STRESS TABS (MULTIVITAMINS W/MINERALS) [Concomitant]
  15. K-PHOS (POTASSIUM PHOSPHATE MONOBASIC) [Concomitant]
  16. ARANESP [Concomitant]
  17. BICITRA (SHOHL'S) [Concomitant]

REACTIONS (25)
  - BIOPSY BONE MARROW ABNORMAL [None]
  - BIOPSY LYMPH GLAND ABNORMAL [None]
  - BONE PAIN [None]
  - CELLULITIS [None]
  - COMPLICATIONS OF TRANSPLANT SURGERY [None]
  - COMPUTERISED TOMOGRAM ABNORMAL [None]
  - DIARRHOEA [None]
  - EPSTEIN-BARR VIRUS TEST POSITIVE [None]
  - HEADACHE [None]
  - HODGKIN'S DISEASE [None]
  - LYMPHADENOPATHY [None]
  - LYMPHOPROLIFERATIVE DISORDER [None]
  - NECK MASS [None]
  - NEOPLASM MALIGNANT [None]
  - NEPHRITIS INTERSTITIAL [None]
  - NIGHT SWEATS [None]
  - PNEUMONIA [None]
  - PROCEDURAL SITE REACTION [None]
  - RENAL ATROPHY [None]
  - SKULL X-RAY ABNORMAL [None]
  - SPLEEN DISORDER [None]
  - TONGUE PARALYSIS [None]
  - TRANSPLANT REJECTION [None]
  - URINARY TRACT INFECTION BACTERIAL [None]
  - WEIGHT DECREASED [None]
